FAERS Safety Report 18880095 (Version 3)
Quarter: 2021Q2

REPORT INFORMATION
  Report Type: Report from Study
  Country: CA (occurrence: CA)
  Receive Date: 20210211
  Receipt Date: 20210407
  Transmission Date: 20210717
  Serious: Yes (Hospitalization)
  Sender: FDA-Public Use
  Company Number: CA-OTSUKA-2021_003234

PATIENT
  Sex: Male

DRUGS (2)
  1. ASTX727 [Suspect]
     Active Substance: CEDAZURIDINE\DECITABINE
     Dosage: 135 MG (35 MG DECITABINE AND 100 MG CEDAZURIDINE), QD (DAILY FOR 4 DAYS IN A 28 DAY CYCLE)
     Route: 048
  2. ASTX727 [Suspect]
     Active Substance: CEDAZURIDINE\DECITABINE
     Indication: MYELODYSPLASTIC SYNDROME
     Dosage: 135 MG (35 MG DECITABINE AND 100 MG CEDAZURIDINE), QD (DAILY FOR 5 DAYS 1?5 IN A 28 DAY CYCLE)
     Route: 048
     Dates: start: 20201227

REACTIONS (5)
  - Therapy cessation [Unknown]
  - Pyrexia [Unknown]
  - Escherichia infection [Unknown]
  - Blood urine present [Unknown]
  - White blood cell count decreased [Unknown]
